FAERS Safety Report 15751007 (Version 1)
Quarter: 2018Q4

REPORT INFORMATION
  Report Type: Spontaneous
  Country: US (occurrence: US)
  Receive Date: 20181221
  Receipt Date: 20181221
  Transmission Date: 20190205
  Serious: No
  Sender: FDA-Public Use
  Company Number: US-THERAPEUTICSMD-2018TMD00268

PATIENT
  Age: 57 Year
  Sex: Female
  Weight: 68.03 kg

DRUGS (4)
  1. BIOTIN [Concomitant]
     Active Substance: BIOTIN
  2. IMVEXXY [Suspect]
     Active Substance: ESTRADIOL
     Indication: VULVOVAGINAL DRYNESS
     Dosage: 10 ?G, 1X/DAY BOTH AT BEDTIME AND PRIOR TO REMAINING UPGRIGHT AND ACTIVE
     Route: 067
     Dates: start: 20180813, end: 20180826
  3. IMVEXXY [Suspect]
     Active Substance: ESTRADIOL
     Dosage: 10 ?G, 2X/WEEK, BOTH BEFORE BEDTIME AND REMAINING UPRIGHT OR ACTIVE
     Route: 067
     Dates: start: 201808, end: 201810
  4. ZOLOFT [Concomitant]
     Active Substance: SERTRALINE HYDROCHLORIDE

REACTIONS (3)
  - Stress [Unknown]
  - Off label use [Recovered/Resolved]
  - Alopecia [Recovering/Resolving]

NARRATIVE: CASE EVENT DATE: 20180813
